FAERS Safety Report 12705836 (Version 1)
Quarter: 2016Q3

REPORT INFORMATION
  Report Type: Spontaneous
  Country: US (occurrence: None)
  Receive Date: 20160831
  Receipt Date: 20160831
  Transmission Date: 20161109
  Serious: Yes (Hospitalization, Disabling)
  Sender: FDA-Public Use
  Company Number: None

PATIENT
  Age: 75 Year
  Sex: Male
  Weight: 73.48 kg

DRUGS (6)
  1. XARELTO [Suspect]
     Active Substance: RIVAROXABAN
     Indication: PAIN IN EXTREMITY
     Route: 048
     Dates: start: 201510, end: 201605
  2. TAMSULOSIN [Concomitant]
     Active Substance: TAMSULOSIN
  3. OMEPRAZOLE. [Concomitant]
     Active Substance: OMEPRAZOLE
  4. AMITRIPTYLINE [Concomitant]
     Active Substance: AMITRIPTYLINE
  5. XARELTO [Suspect]
     Active Substance: RIVAROXABAN
     Indication: PULMONARY PAIN
     Route: 048
     Dates: start: 201510, end: 201605
  6. SINVASTATIN [Concomitant]
     Active Substance: SIMVASTATIN

REACTIONS (1)
  - Deep vein thrombosis [None]

NARRATIVE: CASE EVENT DATE: 20151020
